FAERS Safety Report 7815081-2 (Version None)
Quarter: 2011Q4

REPORT INFORMATION
  Report Type: 
  Country: None (occurrence: None)
  Receive Date: 20111014
  Receipt Date: 20111014
  Transmission Date: 20120403
  Serious: Yes (Other)
  Sender: FDA-Public Use
  Company Number: None

PATIENT
  Age: 87 Year
  Sex: Female
  Weight: 39.008 kg

DRUGS (1)
  1. ROPINIROLE [Suspect]
     Indication: RESTLESS LEGS SYNDROME
     Dates: start: 20110620, end: 20111003

REACTIONS (8)
  - NERVOUSNESS [None]
  - HALLUCINATION [None]
  - CONDITION AGGRAVATED [None]
  - RESTLESS LEGS SYNDROME [None]
  - INSOMNIA [None]
  - FEELING JITTERY [None]
  - DEPRESSION [None]
  - THIRST [None]
